FAERS Safety Report 25324499 (Version 2)
Quarter: 2025Q4

REPORT INFORMATION
  Report Type: Report from Study
  Country: JP (occurrence: JP)
  Receive Date: 20250516
  Receipt Date: 20251001
  Transmission Date: 20260118
  Serious: Yes (Death)
  Sender: SHIONOGI
  Company Number: JP-shionogi-202500005005

PATIENT
  Age: 81 Year
  Sex: Female
  Weight: 79.5 kg

DRUGS (36)
  1. CEFIDEROCOL [Suspect]
     Active Substance: CEFIDEROCOL
     Indication: Stenotrophomonas infection
     Route: 041
     Dates: start: 20240910, end: 20240930
  2. CEFIDEROCOL [Suspect]
     Active Substance: CEFIDEROCOL
     Indication: Abdominal abscess
  3. MICAFUNGIN SODIUM [Concomitant]
     Active Substance: MICAFUNGIN SODIUM
     Indication: Stenotrophomonas infection
     Route: 065
     Dates: start: 20240820, end: 20240909
  4. MICAFUNGIN SODIUM [Concomitant]
     Active Substance: MICAFUNGIN SODIUM
     Indication: Abdominal abscess
     Route: 065
     Dates: start: 20240910, end: 20240910
  5. MICAFUNGIN SODIUM [Concomitant]
     Active Substance: MICAFUNGIN SODIUM
     Indication: Product used for unknown indication
  6. SULFAMETHOXAZOLE\TRIMETHOPRIM [Concomitant]
     Active Substance: SULFAMETHOXAZOLE\TRIMETHOPRIM
     Indication: Stenotrophomonas infection
     Route: 048
     Dates: start: 20240906, end: 20240909
  7. SULFAMETHOXAZOLE\TRIMETHOPRIM [Concomitant]
     Active Substance: SULFAMETHOXAZOLE\TRIMETHOPRIM
     Indication: Abdominal abscess
  8. KCL [Concomitant]
     Active Substance: POTASSIUM CHLORIDE
     Indication: Product used for unknown indication
     Route: 065
     Dates: start: 20240910, end: 20240929
  9. ACMAIN D [Concomitant]
     Indication: Stenotrophomonas infection
     Route: 065
     Dates: start: 20240912, end: 20240930
  10. ACMAIN D [Concomitant]
     Indication: Abdominal abscess
  11. ACOALAN [Concomitant]
     Indication: Product used for unknown indication
     Route: 065
     Dates: start: 20240917, end: 20240917
  12. METRONIDAZOLE [Concomitant]
     Active Substance: METRONIDAZOLE
     Indication: Product used for unknown indication
     Route: 065
     Dates: start: 20240913, end: 20240917
  13. ALBUMINAR [Concomitant]
     Active Substance: ALBUMIN HUMAN
     Indication: Product used for unknown indication
     Route: 065
     Dates: start: 20240912, end: 20240915
  14. CALCIUM CHLORIDE\MAGNESIUM CHLORIDE\POTASSIUM CHLORIDE\SODIUM ACETATE\ [Concomitant]
     Active Substance: CALCIUM CHLORIDE\MAGNESIUM CHLORIDE\POTASSIUM CHLORIDE\SODIUM ACETATE\SODIUM CHLORIDE
     Indication: Stenotrophomonas infection
     Route: 065
     Dates: start: 20240911, end: 20240919
  15. CALCIUM CHLORIDE\MAGNESIUM CHLORIDE\POTASSIUM CHLORIDE\SODIUM ACETATE\ [Concomitant]
     Active Substance: CALCIUM CHLORIDE\MAGNESIUM CHLORIDE\POTASSIUM CHLORIDE\SODIUM ACETATE\SODIUM CHLORIDE
     Indication: Abdominal abscess
  16. MENATETRENONE [Concomitant]
     Active Substance: MENATETRENONE
     Indication: Product used for unknown indication
     Route: 065
     Dates: start: 20240919, end: 20240923
  17. SOLU-CORTEF [Concomitant]
     Active Substance: HYDROCORTISONE SODIUM SUCCINATE
     Indication: Stenotrophomonas infection
     Route: 065
     Dates: start: 20240913, end: 20240913
  18. SOLU-CORTEF [Concomitant]
     Active Substance: HYDROCORTISONE SODIUM SUCCINATE
     Indication: Abdominal abscess
  19. TEICOPLANIN [Concomitant]
     Active Substance: TEICOPLANIN
     Indication: Product used for unknown indication
     Route: 065
     Dates: start: 20240912, end: 20240929
  20. DEXMEDETOMIDINE HYDROCHLORIDE [Concomitant]
     Active Substance: DEXMEDETOMIDINE HYDROCHLORIDE
     Indication: Stenotrophomonas infection
     Route: 065
     Dates: start: 20240913, end: 20240927
  21. DEXMEDETOMIDINE HYDROCHLORIDE [Concomitant]
     Active Substance: DEXMEDETOMIDINE HYDROCHLORIDE
     Indication: Abdominal abscess
  22. GANCICLOVIR [Concomitant]
     Active Substance: GANCICLOVIR
     Indication: Product used for unknown indication
     Route: 065
     Dates: start: 20240917, end: 20240929
  23. AMINO ACIDS, SOURCE UNSPECIFIED [Concomitant]
     Active Substance: AMINO ACIDS, SOURCE UNSPECIFIED
     Indication: Stenotrophomonas infection
     Route: 065
     Dates: start: 20240910, end: 20240929
  24. AMINO ACIDS, SOURCE UNSPECIFIED [Concomitant]
     Active Substance: AMINO ACIDS, SOURCE UNSPECIFIED
     Indication: Abdominal abscess
  25. CALCIUM GLUCONATE\DEXTROSE\MAGNESIUM SULFATE\POTASSIUM ACETATE\POTASSI [Concomitant]
     Active Substance: CALCIUM GLUCONATE\DEXTROSE\MAGNESIUM SULFATE\POTASSIUM ACETATE\POTASSIUM PHOSPHATE, DIBASIC\ZINC SUL
     Indication: Stenotrophomonas infection
     Route: 065
     Dates: start: 20240910, end: 20240929
  26. CALCIUM GLUCONATE\DEXTROSE\MAGNESIUM SULFATE\POTASSIUM ACETATE\POTASSI [Concomitant]
     Active Substance: CALCIUM GLUCONATE\DEXTROSE\MAGNESIUM SULFATE\POTASSIUM ACETATE\POTASSIUM PHOSPHATE, DIBASIC\ZINC SUL
     Indication: Abdominal abscess
  27. VIMPAT [Concomitant]
     Active Substance: LACOSAMIDE
     Indication: Product used for unknown indication
     Route: 065
     Dates: start: 20240924, end: 20240930
  28. FENTANYL CITRATE [Concomitant]
     Active Substance: FENTANYL CITRATE
     Indication: Stenotrophomonas infection
     Route: 065
     Dates: start: 20240930, end: 20240930
  29. FENTANYL CITRATE [Concomitant]
     Active Substance: FENTANYL CITRATE
     Indication: Abdominal abscess
  30. MIDAZOLAM [Concomitant]
     Active Substance: MIDAZOLAM
     Indication: Stenotrophomonas infection
     Route: 065
     Dates: start: 20240930, end: 20240930
  31. MIDAZOLAM [Concomitant]
     Active Substance: MIDAZOLAM
     Indication: Abdominal abscess
  32. MEYLON [Concomitant]
     Active Substance: SODIUM BICARBONATE
     Indication: Product used for unknown indication
     Route: 065
     Dates: start: 20240912, end: 20240913
  33. THROMBOMODULIN ALFA [Concomitant]
     Active Substance: THROMBOMODULIN ALFA
     Indication: Product used for unknown indication
     Route: 065
     Dates: start: 20240914, end: 20240917
  34. INSULIN NOS [Concomitant]
     Active Substance: INSULIN NOS
     Indication: Product used for unknown indication
     Route: 065
     Dates: start: 20240910, end: 20241001
  35. NOREPINEPHRINE BITARTRATE [Concomitant]
     Active Substance: NOREPINEPHRINE BITARTRATE
     Indication: Stenotrophomonas infection
     Route: 065
     Dates: start: 20240912, end: 20240930
  36. NOREPINEPHRINE BITARTRATE [Concomitant]
     Active Substance: NOREPINEPHRINE BITARTRATE
     Indication: Abdominal abscess

REACTIONS (1)
  - Abdominal abscess [Fatal]

NARRATIVE: CASE EVENT DATE: 20241001
